FAERS Safety Report 7340629-4 (Version None)
Quarter: 2011Q1

REPORT INFORMATION
  Report Type: 
  Country: None (occurrence: None)
  Receive Date: 20110309
  Receipt Date: 20110302
  Transmission Date: 20110831
  Serious: Yes (Hospitalization)
  Sender: FDA-Public Use
  Company Number: JP-ROCHE-709322

PATIENT
  Sex: Female
  Weight: 39.4 kg

DRUGS (36)
  1. PREDONINE [Concomitant]
     Route: 048
     Dates: start: 20090730, end: 20090826
  2. PREDONINE [Concomitant]
     Route: 048
     Dates: start: 20100617, end: 20100629
  3. PREDONINE [Concomitant]
     Route: 048
     Dates: start: 20100627, end: 20100629
  4. NEORAL [Concomitant]
     Dosage: FORM: PER ORAL AGENT
     Route: 048
     Dates: start: 20100602, end: 20100602
  5. NEORAL [Concomitant]
     Route: 048
     Dates: start: 20100619, end: 20100628
  6. FAMOTIDINE [Concomitant]
     Dosage: DOSE FORM: PERORAL AGENT
     Route: 048
     Dates: start: 20100602, end: 20100629
  7. TOCILIZUMAB [Suspect]
     Indication: JUVENILE ARTHRITIS
     Route: 041
     Dates: start: 20090818, end: 20100610
  8. NEORAL [Concomitant]
     Dosage: FORM: PER ORAL AGENT
     Route: 048
     Dates: start: 20091113, end: 20091210
  9. BIOFERMIN R [Concomitant]
     Route: 048
     Dates: start: 20100617, end: 20100629
  10. PREDONINE [Concomitant]
     Route: 048
     Dates: start: 20090609, end: 20090701
  11. NEORAL [Concomitant]
     Dosage: FORM: PER ORAL AGENT
     Route: 048
     Dates: start: 20091211, end: 20100107
  12. GLAKAY [Concomitant]
     Route: 048
     Dates: end: 20100602
  13. GLAKAY [Concomitant]
     Route: 048
     Dates: start: 20100607, end: 20100629
  14. ULCERLMIN [Concomitant]
     Indication: PROPHYLAXIS
     Route: 048
     Dates: end: 20090826
  15. BIOFERMIN R [Concomitant]
     Indication: PROPHYLAXIS
     Dosage: FORM:PERORAL AGENT
     Route: 048
     Dates: end: 20090826
  16. TRYPTANOL [Concomitant]
     Dosage: DOSE FORM: PERORAL AGENT
     Route: 048
     Dates: start: 20090827, end: 20090928
  17. PREDONINE [Concomitant]
     Route: 048
     Dates: start: 20090512, end: 20090608
  18. NEORAL [Concomitant]
     Dosage: FORM: PER ORAL AGENT
     Route: 048
     Dates: start: 20100531, end: 20100601
  19. NEORAL [Concomitant]
     Dosage: FORM: PER ORAL AGENT
     Route: 048
     Dates: start: 20100430, end: 20100530
  20. BEZATOL SR [Concomitant]
     Dosage: FORM: SUSTAINED RELEASE TABLET
     Route: 048
     Dates: end: 20100602
  21. ULCERLMIN [Concomitant]
     Route: 048
     Dates: start: 20090827, end: 20090928
  22. TRYPTANOL [Concomitant]
     Route: 048
     Dates: end: 20090826
  23. NEORAL [Concomitant]
     Dosage: FORM: PER ORAL AGENT
     Route: 048
     Dates: end: 20091112
  24. NEORAL [Concomitant]
     Dosage: FORM: PER ORAL AGENT
     Route: 048
     Dates: start: 20100108, end: 20100204
  25. NEORAL [Concomitant]
     Dosage: FORM: PER ORAL AGENT
     Route: 048
     Dates: start: 20100205, end: 20100304
  26. NEORAL [Concomitant]
     Dosage: FORM: PER ORAL AGENT
     Route: 048
     Dates: start: 20100305, end: 20100401
  27. SELBEX [Concomitant]
     Route: 048
     Dates: start: 20100617, end: 20100629
  28. PREDONINE [Concomitant]
     Route: 048
     Dates: start: 20090924, end: 20100602
  29. NEORAL [Concomitant]
     Dosage: FORM: PER ORAL AGENT
     Route: 048
     Dates: start: 20100402, end: 20100429
  30. BEZATOL SR [Concomitant]
     Dosage: FORM: SUSTAINED RELEASE TABLET
     Route: 048
     Dates: start: 20100607, end: 20100629
  31. SOLU-MEDROL [Concomitant]
     Route: 041
     Dates: start: 20100614, end: 20100616
  32. PREDONINE [Concomitant]
     Route: 048
     Dates: start: 20090702, end: 20090729
  33. PREDONINE [Concomitant]
     Route: 048
     Dates: start: 20090827, end: 20090923
  34. NEORAL [Concomitant]
     Route: 048
     Dates: start: 20100605, end: 20100614
  35. BIOFERMIN R [Concomitant]
     Route: 048
     Dates: start: 20090827, end: 20090928
  36. SOLU-MEDROL [Concomitant]
     Route: 041
     Dates: start: 20100624, end: 20100626

REACTIONS (3)
  - SEPSIS [None]
  - WHITE BLOOD CELL COUNT DECREASED [None]
  - HISTIOCYTOSIS HAEMATOPHAGIC [None]
